FAERS Safety Report 8016135-0 (Version None)
Quarter: 2011Q4

REPORT INFORMATION
  Report Type: 
  Country: None (occurrence: None)
  Receive Date: 20111230
  Receipt Date: 20111219
  Transmission Date: 20120403
  Serious: Yes (Disabling)
  Sender: FDA-Public Use
  Company Number: GB-MYLANLABS-2011S1025912

PATIENT
  Age: 42 Year
  Sex: Male
  Weight: 114 kg

DRUGS (2)
  1. CITALOPRAM [Suspect]
     Indication: DEPRESSION
     Route: 048
     Dates: start: 20091001, end: 20111101
  2. QUETIAPINE [Suspect]
     Indication: ANXIETY
     Route: 025
     Dates: start: 20060801, end: 20110401

REACTIONS (2)
  - ELECTROCARDIOGRAM QT PROLONGED [None]
  - FALL [None]
